FAERS Safety Report 5117083-6 (Version None)
Quarter: 2006Q3

REPORT INFORMATION
  Report Type: 
  Country: None (occurrence: None)
  Receive Date: 20060925
  Receipt Date: 20060911
  Transmission Date: 20061208
  Serious: Yes (Other)
  Sender: FDA-Public Use
  Company Number: 2006066007

PATIENT
  Age: 35 Year
  Sex: Female

DRUGS (3)
  1. SOLU-CORTEF [Suspect]
     Indication: URTICARIA
     Dosage: 200 MG (200 MG, 1 IN 1 D) INTRAVENOUS
     Route: 042
     Dates: start: 20060515, end: 20060515
  2. CELESTAMINE TAB [Concomitant]
  3. STRONG NEO-MINOPHAGEN C            (AMINOACETIC ACID, CYSTEINE, GLYCYR [Concomitant]

REACTIONS (1)
  - SHOCK [None]
